FAERS Safety Report 7287650 (Version 2)
Quarter: 2013Q4

REPORT INFORMATION
  Report Type: Spontaneous
  Country: US (occurrence: US)
  Receive Date: 20100222
  Receipt Date: 20131106
  Transmission Date: 20140711
  Serious: Yes (Other)
  Sender: FDA-Public Use
  Company Number: US-BAYER-201012086NA

PATIENT
  Age: 34 Year
  Sex: Female
  Weight: 90.7 kg

DRUGS (9)
  1. YAZ [Suspect]
  2. YASMIN [Suspect]
     Dosage: 1 DF (DAILY DOSE), QD, ORAL
     Route: 048
     Dates: start: 2000, end: 2006
  3. PHENTERMINE [Concomitant]
     Dosage: UNK
     Route: 048
     Dates: start: 20060926
  4. MULTI-VIT [Concomitant]
     Dosage: UNK
     Route: 048
     Dates: start: 20061006
  5. ALBUTEROL [Concomitant]
     Dosage: UNK
     Dates: start: 200411, end: 200610
  6. AVELOX [Concomitant]
     Dosage: UNK
     Dates: start: 200510
  7. OMNICEF [Concomitant]
     Dosage: UNK
     Dates: start: 200603
  8. PROTONIX [Concomitant]
     Dosage: UNK
     Dates: start: 200609
  9. ALLEGRA-D [Concomitant]
     Dosage: UNK
     Route: 048
     Dates: start: 200609

REACTIONS (5)
  - Cholecystitis chronic [Unknown]
  - Abdominal distension [None]
  - Abdominal pain upper [None]
  - Cholelithiasis [None]
  - Cholecystitis chronic [Unknown]
